FAERS Safety Report 10723355 (Version 3)
Quarter: 2015Q1

REPORT INFORMATION
  Report Type: Report from Study
  Country: US (occurrence: US)
  Receive Date: 20150120
  Receipt Date: 20150227
  Transmission Date: 20150721
  Serious: Yes (Life-Threatening, Other)
  Sender: FDA-Public Use
  Company Number: US-BEH-2015047887

PATIENT
  Sex: Male

DRUGS (2)
  1. MORPHINE [Concomitant]
     Active Substance: MORPHINE
  2. ZEMAIRA [Suspect]
     Active Substance: .ALPHA.1-PROTEINASE INHIBITOR HUMAN
     Indication: PRODUCT USED FOR UNKNOWN INDICATION
     Dosage: STARTED IN 2006; LAST DOSE DEC-2014

REACTIONS (12)
  - Somnolence [Unknown]
  - Oxygen supplementation [Unknown]
  - Dyspnoea [Unknown]
  - Fatigue [Unknown]
  - Vomiting [Unknown]
  - Amnesia [Unknown]
  - Anxiety [Unknown]
  - General physical health deterioration [Unknown]
  - Agitation [Unknown]
  - Oxygen saturation decreased [Unknown]
  - Hospice care [Unknown]
  - Oxygen consumption increased [Unknown]
